FAERS Safety Report 24127459 (Version 1)
Quarter: 2024Q3

REPORT INFORMATION
  Report Type: Spontaneous
  Country: US (occurrence: US)
  Receive Date: 20240723
  Receipt Date: 20240723
  Transmission Date: 20241017
  Serious: Yes (Hospitalization)
  Sender: JOHNSON AND JOHNSON
  Company Number: US-JNJFOC-20240742841

PATIENT
  Age: 25 Year
  Sex: Female

DRUGS (5)
  1. TREMFYA [Suspect]
     Active Substance: GUSELKUMAB
     Indication: Psoriasis
     Route: 058
     Dates: start: 20240222
  2. TREMFYA [Suspect]
     Active Substance: GUSELKUMAB
  3. LACOSAMIDE [Concomitant]
     Active Substance: LACOSAMIDE
  4. OXCARBAZEPINE [Concomitant]
     Active Substance: OXCARBAZEPINE
  5. NIFEDIPINE [Concomitant]
     Active Substance: NIFEDIPINE

REACTIONS (2)
  - Seizure [Unknown]
  - Product storage error [Unknown]

NARRATIVE: CASE EVENT DATE: 20240629
